FAERS Safety Report 5522512-X (Version None)
Quarter: 2007Q4

REPORT INFORMATION
  Report Type: 
  Country: None (occurrence: None)
  Receive Date: 20071120
  Receipt Date: 20071109
  Transmission Date: 20080405
  Serious: Yes (Hospitalization)
  Sender: FDA-Public Use
  Company Number: US-PFIZER INC-2007081669

PATIENT
  Sex: Male
  Weight: 73 kg

DRUGS (17)
  1. SUTENT [Suspect]
     Indication: PROSTATE CANCER
     Route: 048
     Dates: start: 20070604, end: 20070930
  2. DOCETAXEL [Suspect]
     Indication: PROSTATE CANCER
     Route: 042
     Dates: start: 20070604, end: 20070917
  3. PREDNISONE TAB [Suspect]
     Indication: PROSTATE CANCER
     Route: 048
  4. PLAVIX [Concomitant]
     Indication: PROPHYLAXIS
     Route: 048
  5. ATENOLOL [Concomitant]
     Indication: PROPHYLAXIS
     Route: 048
     Dates: start: 19930101
  6. ACTONEL [Concomitant]
     Route: 048
     Dates: start: 20040101
  7. ELAVIL [Concomitant]
     Indication: DEPRESSION
     Route: 048
     Dates: start: 19990101
  8. ELAVIL [Concomitant]
     Indication: INSOMNIA
  9. LUPRON [Concomitant]
     Route: 048
     Dates: start: 19900101
  10. VICODIN [Concomitant]
     Route: 048
     Dates: start: 20070529
  11. FENTANYL [Concomitant]
     Route: 048
     Dates: start: 20020101
  12. FIBERCON [Concomitant]
     Route: 048
     Dates: start: 20020101
  13. OSCAL [Concomitant]
     Route: 048
     Dates: start: 20040101
  14. SENOKOT [Concomitant]
     Route: 048
     Dates: start: 20070529
  15. PRILOSEC [Concomitant]
     Indication: DYSPEPSIA
     Route: 048
     Dates: start: 19990101
  16. DEXAMETHASONE [Concomitant]
     Route: 048
     Dates: start: 20070603
  17. POTASSIUM CHLORIDE [Concomitant]
     Route: 048
     Dates: start: 20070501

REACTIONS (1)
  - PNEUMONIA [None]
